FAERS Safety Report 14618850 (Version 1)
Quarter: 2018Q1

REPORT INFORMATION
  Report Type: Spontaneous
  Country: US (occurrence: US)
  Receive Date: 20180309
  Receipt Date: 20180309
  Transmission Date: 20180509
  Serious: No
  Sender: FDA-Public Use
  Company Number: US-BAYER-2018-040745

PATIENT

DRUGS (1)
  1. ALEVE [Suspect]
     Active Substance: NAPROXEN SODIUM
     Indication: PAIN
     Dosage: 1 DF, UNK
     Route: 048
     Dates: start: 20180228, end: 20180228

REACTIONS (4)
  - Swelling [Unknown]
  - Pruritus generalised [Unknown]
  - Pruritus [None]
  - Erythema [Unknown]

NARRATIVE: CASE EVENT DATE: 20180228
